FAERS Safety Report 22386644 (Version 1)
Quarter: 2023Q2

REPORT INFORMATION
  Report Type: Spontaneous
  Country: US (occurrence: US)
  Receive Date: 20230531
  Receipt Date: 20230531
  Transmission Date: 20230721
  Serious: Yes (Hospitalization, Other)
  Sender: FDA-Public Use
  Company Number: US-JNJFOC-20230554786

PATIENT
  Age: 61 Year
  Sex: Female
  Weight: 79.45 kg

DRUGS (1)
  1. XARELTO [Suspect]
     Active Substance: RIVAROXABAN
     Indication: Intracardiac thrombus
     Route: 048
     Dates: start: 20221229

REACTIONS (2)
  - Nephrectomy [Unknown]
  - Transaminases increased [Unknown]

NARRATIVE: CASE EVENT DATE: 20221201
